FAERS Safety Report 4470217-9 (Version None)
Quarter: 2004Q4

REPORT INFORMATION
  Report Type: 
  Country: None (occurrence: None)
  Receive Date: 20041008
  Receipt Date: 20030605
  Transmission Date: 20050328
  Serious: Yes (Other)
  Sender: FDA-Public Use
  Company Number: US-MERCK-0306USA00774

PATIENT
  Age: 56 Year
  Sex: Female
  Weight: 101 kg

DRUGS (5)
  1. LEVAQUIN [Concomitant]
     Route: 048
  2. ZESTRIL [Concomitant]
     Route: 048
  3. GLUCOPHAGE [Concomitant]
     Route: 048
  4. METHYLPREDNISOLONE [Concomitant]
     Route: 065
  5. VIOXX [Suspect]
     Route: 048
     Dates: start: 20010101

REACTIONS (7)
  - ADVERSE EVENT [None]
  - ANGINA UNSTABLE [None]
  - BLOOD PRESSURE INCREASED [None]
  - CAROTID ARTERY STENOSIS [None]
  - CONVULSION [None]
  - HYPERCHOLESTEROLAEMIA [None]
  - INTERMITTENT CLAUDICATION [None]
